FAERS Safety Report 7667903-6 (Version None)
Quarter: 2011Q3

REPORT INFORMATION
  Report Type: 
  Country: None (occurrence: None)
  Receive Date: 20110808
  Receipt Date: 20110802
  Transmission Date: 20111222
  Serious: Yes (Hospitalization, Other)
  Sender: FDA-Public Use
  Company Number: CZ-BIOGENIDEC-2009BI032273

PATIENT
  Age: 43 Year
  Sex: Female
  Weight: 75 kg

DRUGS (14)
  1. ASPIRIN [Concomitant]
  2. TOPIRAMAT SANDOZ [Concomitant]
     Indication: MIGRAINE PROPHYLAXIS
     Route: 048
     Dates: start: 20090406
  3. MONOCLONAL ANTIBODIES [Concomitant]
  4. DICLOFENAC SODIUM [Concomitant]
  5. METAMIZOL [Concomitant]
  6. REBIF [Concomitant]
  7. THIOCOLCHICOSIDE [Concomitant]
  8. TOPIRAMATE [Concomitant]
  9. PITOPHENONE [Concomitant]
  10. VITAMIN B-12 [Concomitant]
  11. NATALIZUMAB [Suspect]
     Indication: MULTIPLE SCLEROSIS
     Route: 042
     Dates: start: 20060405, end: 20090916
  12. IBUPROFEN [Concomitant]
  13. DICLOFENAC SODIUM [Concomitant]
  14. APO OME (OMEPRAZOLE) [Concomitant]

REACTIONS (2)
  - IMMUNE RECONSTITUTION SYNDROME [None]
  - PROGRESSIVE MULTIFOCAL LEUKOENCEPHALOPATHY [None]
